FAERS Safety Report 13270427 (Version 6)
Quarter: 2018Q2

REPORT INFORMATION
  Report Type: Report from Study
  Country: US (occurrence: US)
  Receive Date: 20170224
  Receipt Date: 20180622
  Transmission Date: 20180711
  Serious: Yes (Hospitalization)
  Sender: FDA-Public Use
  Company Number: US-ACTELION-A-NJ2016-132274

PATIENT
  Age: 39 Year
  Sex: Female
  Weight: 63.49 kg

DRUGS (4)
  1. VELETRI [Suspect]
     Active Substance: EPOPROSTENOL
     Dosage: 2 NG/KG, PER MIN
     Route: 042
     Dates: start: 20160209
  2. RIOCIGUAT. [Concomitant]
     Active Substance: RIOCIGUAT
  3. VELETRI [Suspect]
     Active Substance: EPOPROSTENOL
     Indication: PULMONARY ARTERIAL HYPERTENSION
     Dosage: 60 NG/KG, PER MIN
     Route: 042
  4. OPSUMIT [Suspect]
     Active Substance: MACITENTAN
     Indication: PULMONARY ARTERIAL HYPERTENSION
     Dosage: UNK
     Route: 048
     Dates: start: 20160206

REACTIONS (28)
  - Clostridium difficile infection [Unknown]
  - Headache [Unknown]
  - Diarrhoea [Unknown]
  - Medical device change [Unknown]
  - Device malfunction [Recovered/Resolved]
  - Catheter site pruritus [Unknown]
  - Sinusitis [Unknown]
  - Device leakage [Unknown]
  - Tachycardia [Unknown]
  - Nasal congestion [Unknown]
  - Subcutaneous abscess [Unknown]
  - Abscess limb [Unknown]
  - Nausea [Unknown]
  - Malaise [Unknown]
  - Chest discomfort [Unknown]
  - Device occlusion [Unknown]
  - Systemic lupus erythematosus [Unknown]
  - Paraesthesia [Unknown]
  - Disease progression [Unknown]
  - Catheter site discharge [Unknown]
  - Feeling hot [Unknown]
  - Syncope [Unknown]
  - Pulmonary hypertension [Unknown]
  - Catheter site induration [Unknown]
  - Device use error [Unknown]
  - Pain in jaw [Unknown]
  - Catheter site inflammation [Unknown]
  - Catheter site erythema [Unknown]

NARRATIVE: CASE EVENT DATE: 20160530
